FAERS Safety Report 16198673 (Version 1)
Quarter: 2019Q2

REPORT INFORMATION
  Report Type: Report from Study
  Country: US (occurrence: ID)
  Receive Date: 20190415
  Receipt Date: 20190415
  Transmission Date: 20190711
  Serious: Yes (Life-Threatening, Hospitalization)
  Sender: FDA-Public Use
  Company Number: ID-BRECKENRIDGE PHARMACEUTICAL, INC.-2065829

PATIENT
  Age: 30 Year
  Sex: Female

DRUGS (2)
  1. MEFENAMIC ACID. [Suspect]
     Active Substance: MEFENAMIC ACID
  2. CEFADROXIL. [Concomitant]
     Active Substance: CEFADROXIL

REACTIONS (1)
  - Drug reaction with eosinophilia and systemic symptoms [None]
